FAERS Safety Report 26208795 (Version 1)
Quarter: 2025Q4

REPORT INFORMATION
  Report Type: Spontaneous
  Country: GB (occurrence: GB)
  Receive Date: 20251229
  Receipt Date: 20251229
  Transmission Date: 20260117
  Serious: Yes (Hospitalization, Disabling, Other)
  Sender: CELLTRION
  Company Number: None

PATIENT

DRUGS (13)
  1. YUFLYMA [Suspect]
     Active Substance: ADALIMUMAB-AATY
     Indication: Spondyloarthropathy
     Dosage: 40MG ONCE FORTNIGHTLY
     Dates: start: 20250808, end: 20251128
  2. YUFLYMA [Suspect]
     Active Substance: ADALIMUMAB-AATY
  3. PREGABALIN [Concomitant]
     Active Substance: PREGABALIN
     Indication: Fibromyalgia
     Dosage: UNK
  4. SERTRALINE [Concomitant]
     Active Substance: SERTRALINE HYDROCHLORIDE
     Indication: Depression
     Dosage: UNK
  5. ESTRADIOL [Concomitant]
     Active Substance: ESTRADIOL
     Indication: Hysterectomy
     Dosage: UNK
  6. VITAMIN D NOS [Concomitant]
     Active Substance: CHOLECALCIFEROL\ERGOCALCIFEROL
     Indication: Seasonal affective disorder
     Dosage: UNK
  7. MAGNESIUM GLYCINATE [Concomitant]
     Active Substance: MAGNESIUM GLYCINATE
     Indication: Increased need for sleep
     Dosage: UNK
  8. VITAMIN C [Concomitant]
     Active Substance: ASCORBIC ACID
     Indication: Vitamin supplementation
     Dosage: UNK
  9. VITAMIN B12 [Concomitant]
     Active Substance: CYANOCOBALAMIN
     Indication: Vitamin supplementation
     Dosage: UNK
  10. FOLIC ACID [Concomitant]
     Active Substance: FOLIC ACID
     Indication: Folate deficiency
     Dosage: UNK
  11. SELENIUM [Concomitant]
     Active Substance: SELENIUM
     Indication: Vitamin supplementation
     Dosage: UNK
  12. AMITRIPTYLINE [Concomitant]
     Active Substance: AMITRIPTYLINE
     Indication: Neuralgia
     Dosage: UNK
  13. ZINC [Concomitant]
     Active Substance: ZINC
     Indication: Vitamin supplementation

REACTIONS (5)
  - Myelin oligodendrocyte glycoprotein antibody-associated disease [Recovered/Resolved with Sequelae]
  - Sensory loss [Unknown]
  - Loss of bladder sensation [Unknown]
  - Back pain [Unknown]
  - Diplopia [Unknown]

NARRATIVE: CASE EVENT DATE: 20251120
